FAERS Safety Report 24158274 (Version 1)
Quarter: 2024Q3

REPORT INFORMATION
  Report Type: Spontaneous
  Country: CH (occurrence: CH)
  Receive Date: 20240731
  Receipt Date: 20240731
  Transmission Date: 20241017
  Serious: Yes (Hospitalization, Other)
  Sender: BOEHRINGER INGELHEIM
  Company Number: CH-BoehringerIngelheim-2024-BI-041422

PATIENT
  Age: 71 Year
  Sex: Female

DRUGS (1)
  1. DABIGATRAN [Suspect]
     Active Substance: DABIGATRAN
     Indication: Atrial fibrillation

REACTIONS (9)
  - Subarachnoid haemorrhage [Unknown]
  - Intraventricular haemorrhage [Unknown]
  - Meningitis streptococcal [Unknown]
  - Acute kidney injury [Unknown]
  - Catheter site haemorrhage [Unknown]
  - Palatal ulcer [Unknown]
  - Haemorrhage [Unknown]
  - Anticoagulation drug level increased [Recovered/Resolved]
  - Rebound effect [Recovered/Resolved]
